FAERS Safety Report 25321371 (Version 1)
Quarter: 2025Q2

REPORT INFORMATION
  Report Type: Report from Study
  Country: US (occurrence: US)
  Receive Date: 20250515
  Receipt Date: 20250515
  Transmission Date: 20250717
  Serious: Yes (Hospitalization)
  Sender: ALEXION PHARMACEUTICALS
  Company Number: US-AstraZeneca-CH-00869776A

PATIENT
  Weight: 79.02 kg

DRUGS (1)
  1. ACALABRUTINIB [Suspect]
     Active Substance: ACALABRUTINIB
     Indication: Colon cancer
     Dosage: 100 MILLIGRAM, BID

REACTIONS (8)
  - Blood glucose decreased [Unknown]
  - Fall [Unknown]
  - Haemorrhage [Unknown]
  - Gastroenteritis radiation [Unknown]
  - Fluid retention [Unknown]
  - Limb discomfort [Unknown]
  - Swelling [Unknown]
  - Oedema [Unknown]
